FAERS Safety Report 19692542 (Version 1)
Quarter: 2021Q3

REPORT INFORMATION
  Report Type: Report from Study
  Country: TR (occurrence: TR)
  Receive Date: 20210812
  Receipt Date: 20210812
  Transmission Date: 20211014
  Serious: Yes (Death)
  Sender: FDA-Public Use
  Company Number: TR-PFIZER INC-202101025963

PATIENT
  Age: 47 Year
  Sex: Female

DRUGS (1)
  1. GLASDEGIB [Suspect]
     Active Substance: GLASDEGIB
     Dosage: UNK

REACTIONS (1)
  - Death [Fatal]
